FAERS Safety Report 5643387-4 (Version None)
Quarter: 2008Q1

REPORT INFORMATION
  Report Type: 
  Country: None (occurrence: None)
  Receive Date: 20080228
  Receipt Date: 20080226
  Transmission Date: 20080703
  Serious: Yes (Life-Threatening)
  Sender: FDA-Public Use
  Company Number: US-ASTRAZENECA-2008UW03998

PATIENT
  Age: 31 Year
  Sex: Female

DRUGS (5)
  1. SEROQUEL [Suspect]
     Dosage: ON AND OFF
     Route: 048
  2. LAMICTAL [Concomitant]
     Dosage: ON AND OFF
  3. TOPAMAX [Concomitant]
     Dosage: ON AND OFF
  4. ZONEGRAN [Concomitant]
     Dosage: ON AND OFF
  5. XANAX [Concomitant]
     Dosage: ON AND OFF

REACTIONS (4)
  - AGGRESSION [None]
  - ANGER [None]
  - CONVULSIVE THRESHOLD LOWERED [None]
  - SUICIDAL IDEATION [None]
